FAERS Safety Report 11158892 (Version 4)
Quarter: 2015Q3

REPORT INFORMATION
  Report Type: Spontaneous
  Country: US (occurrence: US)
  Receive Date: 20150603
  Receipt Date: 20150721
  Transmission Date: 20151125
  Serious: Yes (Life-Threatening, Disabling, Other)
  Sender: FDA-Public Use
  Company Number: US-RECKITT BENCKISER PHARMACEUTICAL, INC-RB-079824-2015

PATIENT
  Age: 3 Year
  Sex: Male

DRUGS (1)
  1. SUBOXONE [Suspect]
     Active Substance: BUPRENORPHINE HYDROCHLORIDE\NALOXONE HYDROCHLORIDE
     Dosage: UNK
     Route: 048
     Dates: start: 20140522, end: 20140522

REACTIONS (9)
  - Brain injury [Unknown]
  - Accidental overdose [Recovered/Resolved]
  - Drug screen positive [Recovered/Resolved]
  - Accidental exposure to product by child [Recovered/Resolved]
  - Somnolence [Unknown]
  - Disability [Not Recovered/Not Resolved]
  - Vomiting [Unknown]
  - Unresponsive to stimuli [Unknown]
  - Asthenia [Unknown]

NARRATIVE: CASE EVENT DATE: 20140522
